FAERS Safety Report 11786203 (Version 7)
Quarter: 2016Q2

REPORT INFORMATION
  Report Type: Spontaneous
  Country: JP (occurrence: JP)
  Receive Date: 20151130
  Receipt Date: 20160601
  Transmission Date: 20160815
  Serious: Yes (Hospitalization, Other)
  Sender: FDA-Public Use
  Company Number: JP-SA-2015SA193998

PATIENT
  Age: 57 Year
  Sex: Female
  Weight: 49 kg

DRUGS (57)
  1. FLUOROURACIL. [Suspect]
     Active Substance: FLUOROURACIL
     Indication: COLON CANCER STAGE IV
     Dosage: BI-WEEKLY
     Route: 041
     Dates: start: 20110928, end: 20110929
  2. ELPLAT [Suspect]
     Active Substance: OXALIPLATIN
     Indication: COLON CANCER STAGE IV
     Dosage: INJECTION
     Route: 041
     Dates: start: 20110729, end: 20110729
  3. AVASTIN [Suspect]
     Active Substance: BEVACIZUMAB
     Indication: COLON CANCER STAGE IV
     Dosage: BI-WEEKLY
     Route: 041
     Dates: start: 20110815, end: 20110815
  4. FLUOROURACIL. [Suspect]
     Active Substance: FLUOROURACIL
     Indication: COLON CANCER STAGE IV
     Route: 040
     Dates: start: 20111031, end: 20140123
  5. FLUOROURACIL. [Suspect]
     Active Substance: FLUOROURACIL
     Indication: COLON CANCER STAGE IV
     Dosage: BI-WEEKLY
     Route: 041
     Dates: start: 20110711, end: 20110712
  6. FLUOROURACIL. [Suspect]
     Active Substance: FLUOROURACIL
     Indication: COLON CANCER STAGE IV
     Dosage: BI-WEEKLY
     Route: 041
     Dates: start: 20110912, end: 20110913
  7. FLUOROURACIL. [Suspect]
     Active Substance: FLUOROURACIL
     Indication: COLON CANCER STAGE IV
     Dosage: BI-WEEKLY
     Route: 040
     Dates: start: 20110928, end: 20110929
  8. CALCIUM LEVOFOLINATE [Suspect]
     Active Substance: LEVOLEUCOVORIN CALCIUM
     Indication: COLON CANCER STAGE IV
     Dosage: BI-WEEKLY
     Route: 041
     Dates: start: 20110711, end: 20110712
  9. AVASTIN [Suspect]
     Active Substance: BEVACIZUMAB
     Indication: COLON CANCER STAGE IV
     Dosage: BI-WEEKLY
     Route: 041
     Dates: start: 20111014, end: 20111014
  10. FLUOROURACIL. [Suspect]
     Active Substance: FLUOROURACIL
     Indication: COLON CANCER STAGE IV
     Dosage: BI-WEEKLY
     Route: 041
     Dates: start: 20111014, end: 20111015
  11. FLUOROURACIL. [Suspect]
     Active Substance: FLUOROURACIL
     Indication: COLON CANCER STAGE IV
     Route: 040
     Dates: start: 20140212, end: 20140319
  12. FLUOROURACIL. [Suspect]
     Active Substance: FLUOROURACIL
     Indication: COLON CANCER STAGE IV
     Dosage: BI-WEEKLY
     Route: 040
     Dates: start: 20110729, end: 20110730
  13. FLUOROURACIL. [Suspect]
     Active Substance: FLUOROURACIL
     Indication: COLON CANCER STAGE IV
     Dosage: BI-WEEKLY
     Route: 041
     Dates: start: 20110729, end: 20110730
  14. FLUOROURACIL. [Suspect]
     Active Substance: FLUOROURACIL
     Indication: COLON CANCER STAGE IV
     Dosage: BI-WEEKLY
     Route: 040
     Dates: start: 20110912, end: 20110913
  15. ELPLAT [Suspect]
     Active Substance: OXALIPLATIN
     Indication: COLON CANCER STAGE IV
     Dosage: INJECTION
     Route: 041
     Dates: start: 20110711, end: 20110711
  16. ELPLAT [Suspect]
     Active Substance: OXALIPLATIN
     Indication: COLON CANCER STAGE IV
     Dosage: INJECTION
     Route: 041
     Dates: start: 20110928, end: 20110928
  17. CALCIUM LEVOFOLINATE [Suspect]
     Active Substance: LEVOLEUCOVORIN CALCIUM
     Indication: COLON CANCER STAGE IV
     Dosage: BI-WEEKLY
     Route: 041
     Dates: start: 20110829, end: 20110830
  18. AVASTIN [Suspect]
     Active Substance: BEVACIZUMAB
     Indication: COLON CANCER STAGE IV
     Dosage: BI-WEEKLY
     Route: 041
     Dates: start: 20110711, end: 20110711
  19. AVASTIN [Suspect]
     Active Substance: BEVACIZUMAB
     Indication: COLON CANCER STAGE IV
     Dosage: BI-WEEKLY
     Route: 041
     Dates: start: 20110729, end: 20110729
  20. AVASTIN [Suspect]
     Active Substance: BEVACIZUMAB
     Indication: COLON CANCER STAGE IV
     Dosage: BI-WEEKLY
     Route: 041
     Dates: start: 20110912, end: 20110912
  21. AVASTIN [Suspect]
     Active Substance: BEVACIZUMAB
     Indication: COLON CANCER STAGE IV
     Dosage: BI-WEEKLY
     Route: 041
     Dates: start: 20110928, end: 20110928
  22. AVASTIN [Suspect]
     Active Substance: BEVACIZUMAB
     Indication: COLON CANCER STAGE IV
     Route: 041
     Dates: start: 20140212, end: 20140319
  23. FLUOROURACIL. [Suspect]
     Active Substance: FLUOROURACIL
     Indication: COLON CANCER STAGE IV
     Dosage: BI-WEEKLY
     Route: 040
     Dates: start: 20110609, end: 20110610
  24. FLUOROURACIL. [Suspect]
     Active Substance: FLUOROURACIL
     Indication: COLON CANCER STAGE IV
     Dosage: BI-WEEKLY
     Route: 041
     Dates: start: 20110627, end: 20110628
  25. CALCIUM LEVOFOLINATE [Suspect]
     Active Substance: LEVOLEUCOVORIN CALCIUM
     Indication: COLON CANCER STAGE IV
     Dosage: BI-WEEKLY
     Route: 041
     Dates: start: 20110912, end: 20110913
  26. FLUOROURACIL. [Suspect]
     Active Substance: FLUOROURACIL
     Indication: COLON CANCER STAGE IV
     Dosage: BI-WEEKLY
     Route: 040
     Dates: start: 20110815, end: 20110816
  27. FLUOROURACIL. [Suspect]
     Active Substance: FLUOROURACIL
     Indication: COLON CANCER STAGE IV
     Dosage: BI-WEEKLY
     Route: 041
     Dates: start: 20110815, end: 20110816
  28. ELPLAT [Suspect]
     Active Substance: OXALIPLATIN
     Indication: COLON CANCER STAGE IV
     Dosage: INJECTION
     Route: 041
     Dates: start: 20111031, end: 20140123
  29. CALCIUM LEVOFOLINATE [Suspect]
     Active Substance: LEVOLEUCOVORIN CALCIUM
     Indication: COLON CANCER STAGE IV
     Route: 041
     Dates: start: 20140212, end: 20140319
  30. NORVASC [Concomitant]
     Active Substance: AMLODIPINE BESYLATE
     Dates: start: 20110709
  31. FLUOROURACIL. [Suspect]
     Active Substance: FLUOROURACIL
     Indication: COLON CANCER STAGE IV
     Dosage: BI-WEEKLY
     Route: 040
     Dates: start: 20110627, end: 20110628
  32. FLUOROURACIL. [Suspect]
     Active Substance: FLUOROURACIL
     Indication: COLON CANCER STAGE IV
     Route: 041
     Dates: start: 20111031, end: 20140123
  33. FLUOROURACIL. [Suspect]
     Active Substance: FLUOROURACIL
     Indication: COLON CANCER STAGE IV
     Route: 041
     Dates: start: 20140212, end: 20140319
  34. ELPLAT [Suspect]
     Active Substance: OXALIPLATIN
     Indication: COLON CANCER STAGE IV
     Dosage: INJECTION
     Route: 041
     Dates: start: 20110609, end: 20110609
  35. ELPLAT [Suspect]
     Active Substance: OXALIPLATIN
     Indication: COLON CANCER STAGE IV
     Dosage: INJECTION
     Route: 041
     Dates: start: 20110711, end: 20110711
  36. ELPLAT [Suspect]
     Active Substance: OXALIPLATIN
     Indication: COLON CANCER STAGE IV
     Dosage: INJECTION
     Route: 041
     Dates: start: 20110912, end: 20110912
  37. CALCIUM LEVOFOLINATE [Suspect]
     Active Substance: LEVOLEUCOVORIN CALCIUM
     Indication: COLON CANCER STAGE IV
     Dosage: BI-WEEKLY
     Route: 041
     Dates: start: 20111031, end: 20140123
  38. AVASTIN [Suspect]
     Active Substance: BEVACIZUMAB
     Indication: COLON CANCER STAGE IV
     Dosage: BI-WEEKLY
     Route: 041
     Dates: start: 20111031, end: 20140123
  39. FLUOROURACIL. [Suspect]
     Active Substance: FLUOROURACIL
     Indication: COLON CANCER STAGE IV
     Dosage: BI-WEEKLY
     Route: 040
     Dates: start: 20110711, end: 20110712
  40. FLUOROURACIL. [Suspect]
     Active Substance: FLUOROURACIL
     Indication: COLON CANCER STAGE IV
     Dosage: BI-WEEKLY
     Route: 040
     Dates: start: 20110829, end: 20110830
  41. FLUOROURACIL. [Suspect]
     Active Substance: FLUOROURACIL
     Indication: COLON CANCER STAGE IV
     Dosage: BI-WEEKLY
     Route: 041
     Dates: start: 20110829, end: 20110830
  42. FLUOROURACIL. [Suspect]
     Active Substance: FLUOROURACIL
     Indication: COLON CANCER STAGE IV
     Dosage: BI-WEEKLY
     Route: 040
     Dates: start: 20111014, end: 20111015
  43. ELPLAT [Suspect]
     Active Substance: OXALIPLATIN
     Indication: COLON CANCER STAGE IV
     Dosage: INJECTION
     Route: 041
     Dates: start: 20110627, end: 20110627
  44. ELPLAT [Suspect]
     Active Substance: OXALIPLATIN
     Indication: COLON CANCER STAGE IV
     Dosage: INJECTION
     Route: 041
     Dates: start: 20111014, end: 20111014
  45. CALCIUM LEVOFOLINATE [Suspect]
     Active Substance: LEVOLEUCOVORIN CALCIUM
     Indication: COLON CANCER STAGE IV
     Dosage: BI-WEEKLY
     Route: 041
     Dates: start: 20111014, end: 20111015
  46. AVASTIN [Suspect]
     Active Substance: BEVACIZUMAB
     Indication: COLON CANCER STAGE IV
     Dosage: BI-WEEKLY
     Route: 041
     Dates: start: 20110609, end: 20110609
  47. AVASTIN [Suspect]
     Active Substance: BEVACIZUMAB
     Indication: COLON CANCER STAGE IV
     Dosage: BI-WEEKLY
     Route: 041
     Dates: start: 20110627, end: 20110627
  48. AVASTIN [Suspect]
     Active Substance: BEVACIZUMAB
     Indication: COLON CANCER STAGE IV
     Dosage: BI-WEEKLY
     Route: 041
     Dates: start: 20110829, end: 20110829
  49. FLUOROURACIL. [Suspect]
     Active Substance: FLUOROURACIL
     Indication: COLON CANCER STAGE IV
     Dosage: BI-WEEKLY
     Route: 041
     Dates: start: 20110609, end: 20110610
  50. ELPLAT [Suspect]
     Active Substance: OXALIPLATIN
     Indication: COLON CANCER STAGE IV
     Dosage: INJECTION
     Route: 041
     Dates: start: 20110815, end: 20110815
  51. ELPLAT [Suspect]
     Active Substance: OXALIPLATIN
     Indication: COLON CANCER STAGE IV
     Dosage: INJECTION
     Route: 041
     Dates: start: 20110829, end: 20110829
  52. ELPLAT [Suspect]
     Active Substance: OXALIPLATIN
     Indication: COLON CANCER STAGE IV
     Dosage: INJECTION
     Route: 041
     Dates: start: 20140212, end: 20140319
  53. CALCIUM LEVOFOLINATE [Suspect]
     Active Substance: LEVOLEUCOVORIN CALCIUM
     Indication: COLON CANCER STAGE IV
     Dosage: BI-WEEKLY
     Route: 041
     Dates: start: 20110609, end: 20110610
  54. CALCIUM LEVOFOLINATE [Suspect]
     Active Substance: LEVOLEUCOVORIN CALCIUM
     Indication: COLON CANCER STAGE IV
     Dosage: BI-WEEKLY
     Route: 041
     Dates: start: 20110627, end: 20110628
  55. CALCIUM LEVOFOLINATE [Suspect]
     Active Substance: LEVOLEUCOVORIN CALCIUM
     Indication: COLON CANCER STAGE IV
     Dosage: BI-WEEKLY
     Route: 041
     Dates: start: 20110729, end: 20110730
  56. CALCIUM LEVOFOLINATE [Suspect]
     Active Substance: LEVOLEUCOVORIN CALCIUM
     Indication: COLON CANCER STAGE IV
     Dosage: BI-WEEKLY
     Route: 041
     Dates: start: 20110815, end: 20110816
  57. CALCIUM LEVOFOLINATE [Suspect]
     Active Substance: LEVOLEUCOVORIN CALCIUM
     Indication: COLON CANCER STAGE IV
     Dosage: BI-WEEKLY
     Route: 041
     Dates: start: 20110928, end: 20110929

REACTIONS (10)
  - Large intestinal obstruction [Recovered/Resolved]
  - Hypertension [Unknown]
  - Nausea [Recovering/Resolving]
  - Vomiting [Recovering/Resolving]
  - Impaired healing [Unknown]
  - Rectal obstruction [Recovering/Resolving]
  - Neutrophil count decreased [Recovered/Resolved]
  - Large intestinal stenosis [Recovering/Resolving]
  - White blood cell count decreased [Unknown]
  - Abdominal pain [Recovering/Resolving]

NARRATIVE: CASE EVENT DATE: 20110623
